FAERS Safety Report 21289816 (Version 1)
Quarter: 2022Q3

REPORT INFORMATION
  Report Type: Spontaneous
  Country: CN (occurrence: CN)
  Receive Date: 20220902
  Receipt Date: 20220902
  Transmission Date: 20221027
  Serious: Yes (Hospitalization, Other)
  Sender: FDA-Public Use
  Company Number: None

PATIENT
  Age: 74 Year
  Sex: Female
  Weight: 54 kg

DRUGS (7)
  1. CYCLOPHOSPHAMIDE [Suspect]
     Active Substance: CYCLOPHOSPHAMIDE
     Indication: Follicular lymphoma stage IV
     Dosage: 1.1 G, QD, DILUTED WITH 0.9% SODIUM CHLORIDE INJECTION 40ML, D2, (MICROPUMP)
     Route: 040
     Dates: start: 20220720, end: 20220720
  2. SODIUM CHLORIDE [Suspect]
     Active Substance: SODIUM CHLORIDE
     Indication: Medication dilution
     Dosage: 40 ML, QD, DILUTED IN CYCLOPHOSPHAMIDE (1.1 G), D2, MICROPUMP
     Route: 040
     Dates: start: 20220720, end: 20220720
  3. SODIUM CHLORIDE [Suspect]
     Active Substance: SODIUM CHLORIDE
     Dosage: 20 ML, QD, DILUTED IN VINDESINE (4 MG), D2, MICROPUMP
     Route: 040
     Dates: start: 20220719, end: 20220719
  4. SODIUM CHLORIDE [Suspect]
     Active Substance: SODIUM CHLORIDE
     Dosage: 250 ML, QD, DILUTED IN ORTUZUMAB (1 G), D1
     Route: 041
     Dates: start: 20220719, end: 20220719
  5. SODIUM CHLORIDE [Suspect]
     Active Substance: SODIUM CHLORIDE
     Dosage: 100 ML, DILUTED IN DEXAMETHASONE SODIUM PHOSPHATE (15 MG), D2-4
     Route: 041
     Dates: start: 20220720, end: 20220722
  6. VINDESINE SULFATE [Suspect]
     Active Substance: VINDESINE SULFATE
     Indication: Follicular lymphoma stage IV
     Dosage: 4 MG, QD, DILUED WITH 0.9% SODIUM CHLORIDE INJECTION 20ML, D2, (MICROPUMP)
     Route: 040
     Dates: start: 20220720, end: 20220720
  7. DEXAMETHASONE SODIUM PHOSPHATE [Suspect]
     Active Substance: DEXAMETHASONE SODIUM PHOSPHATE
     Indication: Follicular lymphoma stage IV
     Dosage: 15 MG, DILUTED WITH 0.9% SODIUM CHLORIDE 100ML, D2-4
     Route: 041
     Dates: start: 20220720, end: 20220722

REACTIONS (2)
  - Neutropenia [Recovering/Resolving]
  - Pyrexia [Recovering/Resolving]

NARRATIVE: CASE EVENT DATE: 20220801
